FAERS Safety Report 6557294-6 (Version None)
Quarter: 2010Q1

REPORT INFORMATION
  Report Type: 
  Country: None (occurrence: None)
  Receive Date: 20100129
  Receipt Date: 20100118
  Transmission Date: 20100710
  Serious: Yes (Hospitalization, Other)
  Sender: FDA-Public Use
  Company Number: GB-RANBAXY-2008RR-15772

PATIENT
  Age: 18 Year
  Sex: Male

DRUGS (9)
  1. METFORMIN [Suspect]
     Indication: WEIGHT DECREASED
     Dosage: 250 MG, QD
     Dates: start: 20080401, end: 20080405
  2. METFORMIN [Suspect]
     Dosage: 250 MG, BID
     Dates: end: 20080405
  3. CLOZARIL [Suspect]
     Indication: SCHIZOPHRENIA
     Dosage: 350 MG, UNK
     Route: 048
     Dates: start: 20071102, end: 20080514
  4. CLOZARIL [Suspect]
     Dosage: UNK
     Route: 048
  5. CLOZARIL [Suspect]
     Dosage: UNK
     Route: 048
  6. DOCUSATE [Concomitant]
     Indication: CONSTIPATION
     Dosage: 200 MG, UNK
  7. HYOSCINE HBR HYT [Concomitant]
     Indication: SALIVARY HYPERSECRETION
     Dosage: 300 MG, TID
  8. SENNA [Concomitant]
     Indication: CONSTIPATION
     Dosage: 15 MG, UNK
  9. OLANZAPINE [Concomitant]

REACTIONS (11)
  - DEHYDRATION [None]
  - DIARRHOEA [None]
  - DRUG INTERACTION [None]
  - ENURESIS [None]
  - GASTROENTERITIS [None]
  - NAUSEA [None]
  - NEUTROPENIA [None]
  - PNEUMONIA [None]
  - SALIVARY HYPERSECRETION [None]
  - VOMITING [None]
  - WEIGHT INCREASED [None]
